FAERS Safety Report 8055849-3 (Version None)
Quarter: 2012Q1

REPORT INFORMATION
  Report Type: 
  Country: None (occurrence: None)
  Receive Date: 20120119
  Receipt Date: 20120119
  Transmission Date: 20120608
  Serious: Yes (Life-Threatening, Hospitalization)
  Sender: FDA-Public Use
  Company Number: None

PATIENT
  Sex: Female

DRUGS (1)
  1. EMLA [Suspect]
     Indication: NAEVUS FLAMMEUS
     Dosage: UNKNOWN AMOUNT APPLIED
     Route: 061
     Dates: start: 20111024, end: 20111024

REACTIONS (7)
  - CARDIO-RESPIRATORY ARREST [None]
  - UNRESPONSIVE TO STIMULI [None]
  - CYANOSIS [None]
  - CLONUS [None]
  - CONVULSION [None]
  - TOXICITY TO VARIOUS AGENTS [None]
  - METHAEMOGLOBINAEMIA [None]
